FAERS Safety Report 15852383 (Version 1)
Quarter: 2019Q1

REPORT INFORMATION
  Report Type: Spontaneous
  Country: IN (occurrence: IN)
  Receive Date: 20190122
  Receipt Date: 20190122
  Transmission Date: 20190417
  Serious: Yes (Death, Hospitalization, Other)
  Sender: FDA-Public Use
  Company Number: IN-ROCHE-2247375

PATIENT
  Age: 40 Year
  Sex: Male

DRUGS (2)
  1. MYCOPHENOLATE MOFETIL. [Suspect]
     Active Substance: MYCOPHENOLATE MOFETIL
     Indication: IMMUNOSUPPRESSION
     Route: 065
  2. TACROLIMUS. [Suspect]
     Active Substance: TACROLIMUS
     Indication: IMMUNOSUPPRESSION
     Route: 065

REACTIONS (9)
  - Brain abscess [Fatal]
  - Haemorrhage intracranial [Fatal]
  - Fungal infection [Fatal]
  - Thrombocytopenia [Fatal]
  - Cytopenia [Fatal]
  - Pneumonia [Fatal]
  - Pulmonary tuberculosis [Unknown]
  - Toxoplasmosis [Fatal]
  - Septic shock [Fatal]

NARRATIVE: CASE EVENT DATE: 2016
